FAERS Safety Report 7560758-X (Version None)
Quarter: 2011Q2

REPORT INFORMATION
  Report Type: 
  Country: None (occurrence: None)
  Receive Date: 20110621
  Receipt Date: 20101110
  Transmission Date: 20111010
  Serious: No
  Sender: FDA-Public Use
  Company Number: US-ASTRAZENECA-2010SE49234

PATIENT
  Sex: Female

DRUGS (2)
  1. ATACAND [Suspect]
     Route: 048
  2. NEXIUM [Suspect]
     Route: 048

REACTIONS (5)
  - GASTROOESOPHAGEAL REFLUX DISEASE [None]
  - APHAGIA [None]
  - DRUG DOSE OMISSION [None]
  - ASTHMA [None]
  - CATARACT [None]
